FAERS Safety Report 10220819 (Version 1)
Quarter: 2014Q2

REPORT INFORMATION
  Report Type: Spontaneous
  Country: KR (occurrence: KR)
  Receive Date: 20140606
  Receipt Date: 20140606
  Transmission Date: 20141212
  Serious: No
  Sender: FDA-Public Use
  Company Number: KR-JNJFOC-20140515623

PATIENT
  Sex: 0

DRUGS (1)
  1. DUROGESIC D-TRANS [Suspect]
     Indication: PRODUCT USED FOR UNKNOWN INDICATION
     Route: 062

REACTIONS (5)
  - Wrong technique in drug usage process [Unknown]
  - Application site vesicles [Unknown]
  - Product quality issue [Unknown]
  - Product quality issue [Unknown]
  - Poor quality drug administered [Unknown]
